FAERS Safety Report 10257405 (Version 1)
Quarter: 2014Q2

REPORT INFORMATION
  Report Type: Spontaneous
  Country: US (occurrence: None)
  Receive Date: 20140623
  Receipt Date: 20140623
  Transmission Date: 20141212
  Serious: Yes (Death)
  Sender: FDA-Public Use
  Company Number: None

PATIENT
  Age: 50 Year
  Sex: Male
  Weight: 55.79 kg

DRUGS (5)
  1. EXJADE [Suspect]
     Indication: SICKLE CELL ANAEMIA
     Route: 048
     Dates: start: 20120515, end: 20140506
  2. PERCOCET [Concomitant]
  3. FOLIC ACID [Concomitant]
  4. TOPAMAX [Concomitant]
  5. EXJADE [Suspect]
     Route: 048

REACTIONS (1)
  - Death [None]
